FAERS Safety Report 8975127 (Version 1)
Quarter: 2012Q4

REPORT INFORMATION
  Report Type: 
  Country: US (occurrence: US)
  Receive Date: 20121219
  Receipt Date: 20121219
  Transmission Date: 20130627
  Serious: No
  Sender: FDA-Public Use
  Company Number: US-AMGEN-USASP2012075543

PATIENT
  Age: 81 Year
  Sex: Male
  Weight: 75.28 kg

DRUGS (7)
  1. XGEVA [Suspect]
     Indication: METASTASES TO BONE
     Dosage: 120 mg, q3wk
     Route: 058
     Dates: start: 20120918
  2. NEULASTA [Concomitant]
     Dosage: 6 mg, q3wk
     Dates: start: 20120917
  3. TAXOTERE [Concomitant]
     Dosage: 150 mg, q3wk
     Route: 042
     Dates: start: 20120917
  4. PREDNISONE [Concomitant]
     Dosage: 5 mg, bid
     Route: 048
     Dates: start: 20120917
  5. CALCIUM [Concomitant]
     Dosage: 500 mg, qd
     Route: 048
     Dates: start: 20120917
  6. DECADRON [Concomitant]
     Dosage: 8 mg, UNK
     Route: 048
  7. ATIVAN [Concomitant]
     Dosage: 1 mg, q2h

REACTIONS (8)
  - Inappropriate schedule of drug administration [Unknown]
  - Malaise [Unknown]
  - Respiratory disorder [Unknown]
  - Chills [Unknown]
  - Fatigue [Unknown]
  - Asthenia [Unknown]
  - Cough [Unknown]
  - Blood calcium decreased [Unknown]
